FAERS Safety Report 24281340 (Version 2)
Quarter: 2024Q3

REPORT INFORMATION
  Report Type: Spontaneous
  Country: JP (occurrence: JP)
  Receive Date: 20240904
  Receipt Date: 20240925
  Transmission Date: 20241017
  Serious: Yes (Other)
  Sender: ROCHE
  Company Number: JP-CHUGAI-2024030400AA

PATIENT
  Age: 7 Decade
  Sex: Male

DRUGS (3)
  1. ROZLYTREK [Suspect]
     Active Substance: ENTRECTINIB
     Indication: Non-small cell lung cancer
     Dosage: 400 MILLIGRAM, QD
     Route: 050
     Dates: end: 20240827
  2. ROZLYTREK [Suspect]
     Active Substance: ENTRECTINIB
     Dosage: 400 MILLIGRAM, QD
     Route: 050
     Dates: start: 20240829
  3. ROZLYTREK [Suspect]
     Active Substance: ENTRECTINIB
     Route: 050
     Dates: start: 2021

REACTIONS (3)
  - Syncope [Unknown]
  - Joint arthroplasty [Unknown]
  - Hypotension [Unknown]

NARRATIVE: CASE EVENT DATE: 20240828
